FAERS Safety Report 14467870 (Version 1)
Quarter: 2018Q1

REPORT INFORMATION
  Report Type: Other
  Country: US (occurrence: US)
  Receive Date: 20180131
  Receipt Date: 20180131
  Transmission Date: 20180509
  Serious: No
  Sender: FDA-Public Use
  Company Number: US-ACORDA-ACO_138373_2017

PATIENT
  Sex: Male

DRUGS (4)
  1. AMPYRA [Suspect]
     Active Substance: DALFAMPRIDINE
     Indication: GAIT DISTURBANCE
  2. AMPYRA [Suspect]
     Active Substance: DALFAMPRIDINE
     Indication: MULTIPLE SCLEROSIS
     Dosage: 10 MG, Q 12 HRS
     Route: 048
     Dates: start: 20170110, end: 20170522
  3. BACLOFEN. [Concomitant]
     Active Substance: BACLOFEN
     Indication: PROPHYLAXIS
  4. BACLOFEN. [Concomitant]
     Active Substance: BACLOFEN
     Indication: BLADDER SPASM
     Dosage: UNK
     Route: 037

REACTIONS (4)
  - Condition aggravated [Recovered/Resolved]
  - Blood urine present [Recovered/Resolved]
  - Cystitis [Recovered/Resolved]
  - Cystitis escherichia [Recovered/Resolved]
